FAERS Safety Report 14233897 (Version 3)
Quarter: 2018Q1

REPORT INFORMATION
  Report Type: Spontaneous
  Country: FR (occurrence: FR)
  Receive Date: 20171128
  Receipt Date: 20180102
  Transmission Date: 20180508
  Serious: Yes (Death, Life-Threatening, Other)
  Sender: FDA-Public Use
  Company Number: FR-BAXTER-2017BAX039437

PATIENT
  Age: 55 Year
  Sex: Male
  Weight: 108 kg

DRUGS (11)
  1. SUFENTA [Suspect]
     Active Substance: SUFENTANIL CITRATE
     Indication: SEDATION
     Route: 042
     Dates: start: 20171023, end: 20171123
  2. KCL [Suspect]
     Active Substance: POTASSIUM CHLORIDE
     Indication: HAEMOFILTRATION
     Route: 010
     Dates: start: 20171029
  3. RINGER LACTATE VIAFLO, SOLUTION POUR PERFUSION [Suspect]
     Active Substance: CALCIUM CHLORIDE\POTASSIUM CHLORIDE\SODIUM CHLORIDE\SODIUM LACTATE
     Indication: HYPOVOLAEMIA
     Route: 042
     Dates: start: 20171028, end: 20171028
  4. PHOXILIUM 1,2 MMOL/L PHOSPHATE, SOLUTION POUR H?MODIALYSE ET H?MOFILTR [Suspect]
     Active Substance: CALCIUM CL\MAGNESIUM CL\POTASSIUM CL\SODIUM BICAR\SODIUM CL\SODIUM PHOSPHATE,DIB
     Indication: HAEMOFILTRATION
     Route: 042
     Dates: start: 20171024, end: 20171028
  5. MIDAZOLAM [Suspect]
     Active Substance: MIDAZOLAM HYDROCHLORIDE
     Indication: SEDATION
     Route: 042
     Dates: start: 20171023, end: 20171123
  6. TAZOCILLINE [Suspect]
     Active Substance: PIPERACILLIN SODIUM\TAZOBACTAM SODIUM
     Indication: LUNG DISORDER
     Route: 042
     Dates: start: 20171025, end: 20171101
  7. NORADRENALINE [Suspect]
     Active Substance: NOREPINEPHRINE
     Indication: SHOCK
     Route: 042
     Dates: start: 20171023, end: 20171123
  8. INEXIUM [Suspect]
     Active Substance: ESOMEPRAZOLE
     Indication: PROPHYLAXIS
     Route: 042
     Dates: start: 20171023, end: 20171130
  9. HEMOSOL B0 [Suspect]
     Active Substance: CALCIUM CL\DEXTROSE\LACTIC ACID\MAGNESIUM CL\POTASSIUM CL\SODIUM BICAR\SODIUM CL
     Indication: HAEMOFILTRATION
     Route: 010
     Dates: start: 20171029
  10. ADRENALINE [Suspect]
     Active Substance: EPINEPHRINE
     Indication: SHOCK
     Route: 042
     Dates: start: 20171023, end: 20171123
  11. HEMISUCCINATE HYDROCORTISONE [Suspect]
     Active Substance: HYDROCORTISONE HEMISUCCINATE
     Indication: SHOCK
     Route: 042
     Dates: start: 20171023, end: 20171130

REACTIONS (3)
  - Condition aggravated [Recovered/Resolved]
  - Death [Fatal]
  - Metabolic acidosis [Recovered/Resolved]

NARRATIVE: CASE EVENT DATE: 20171025
